FAERS Safety Report 16776025 (Version 4)
Quarter: 2019Q3

REPORT INFORMATION
  Report Type: Spontaneous
  Country: JP (occurrence: JP)
  Receive Date: 20190905
  Receipt Date: 20190923
  Transmission Date: 20191005
  Serious: Yes (Hospitalization)
  Sender: FDA-Public Use
  Company Number: PHJP2019JP011123

PATIENT
  Age: 74 Year
  Sex: Male

DRUGS (2)
  1. PREDONINE [Concomitant]
     Active Substance: PREDNISOLONE
     Indication: NEURODERMATITIS
     Dosage: 5 MG, UNK
     Route: 065
  2. NEORAL [Suspect]
     Active Substance: CYCLOSPORINE
     Indication: NEURODERMATITIS
     Dosage: 100 MG, UNK
     Route: 048

REACTIONS (9)
  - Dyspnoea exertional [Recovering/Resolving]
  - Dyspnoea [Recovering/Resolving]
  - General physical health deterioration [Unknown]
  - Myelodysplastic syndrome [Unknown]
  - Product use in unapproved indication [Unknown]
  - Interstitial lung disease [Recovering/Resolving]
  - Pancytopenia [Unknown]
  - Pyrexia [Unknown]
  - Chest X-ray abnormal [Unknown]
